FAERS Safety Report 4598271-4 (Version None)
Quarter: 2005Q1

REPORT INFORMATION
  Report Type: 
  Country: None (occurrence: None)
  Receive Date: 20050204
  Receipt Date: 20040507
  Transmission Date: 20050727
  Serious: Yes (Hospitalization)
  Sender: FDA-Public Use
  Company Number: PHEH2004US05220

PATIENT
  Age: 17 Year
  Sex: Male

DRUGS (3)
  1. CLOZARIL [Suspect]
     Indication: SCHIZOPHRENIA, PARANOID TYPE
     Dosage: 450 MG ; 350 MG  : QD, ORAL
     Route: 048
  2. SEROQUEL [Concomitant]
  3. LITHIUM (LITHIUM) [Concomitant]

REACTIONS (3)
  - AGITATION [None]
  - DYSPHEMIA [None]
  - PARANOIA [None]
